FAERS Safety Report 22129769 (Version 1)
Quarter: 2023Q1

REPORT INFORMATION
  Report Type: Spontaneous
  Country: US (occurrence: None)
  Receive Date: 20230322
  Receipt Date: 20230322
  Transmission Date: 20230417
  Serious: Yes (Other)
  Sender: FDA-Public Use
  Company Number: None

PATIENT
  Age: 38 Year
  Sex: Male
  Weight: 96.75 kg

DRUGS (2)
  1. VTAMA [Suspect]
     Active Substance: TAPINAROF
     Indication: Psoriasis
     Dosage: OTHER QUANTITY : 1 APPLICAITION;?FREQUENCY : AT BEDTIME;?
     Route: 061
  2. VTAMA [Concomitant]
     Active Substance: TAPINAROF

REACTIONS (4)
  - Penile swelling [None]
  - Pruritus genital [None]
  - Penile erythema [None]
  - Application site reaction [None]

NARRATIVE: CASE EVENT DATE: 20230322
